FAERS Safety Report 6243405-9 (Version None)
Quarter: 2009Q2

REPORT INFORMATION
  Report Type: 
  Country: None (occurrence: None)
  Receive Date: 20090618
  Receipt Date: 20081212
  Transmission Date: 20091009
  Serious: Yes (Other)
  Sender: FDA-Public Use
  Company Number: CIP08000240

PATIENT
  Age: 67 Year
  Sex: Female

DRUGS (9)
  1. ACTONEL [Suspect]
     Indication: OSTEONECROSIS
     Dosage: 30 MG ONCE WEEKLY, ORAL ; 35 MG ONCE WEEKLY, ORAL
     Route: 048
     Dates: start: 20010604, end: 20020730
  2. ACTONEL [Suspect]
     Indication: OSTEONECROSIS
     Dosage: 30 MG ONCE WEEKLY, ORAL ; 35 MG ONCE WEEKLY, ORAL
     Route: 048
     Dates: start: 20020730, end: 20070615
  3. LANSOPRAZOLE [Concomitant]
  4. NORTRIPTYLINE HCL [Concomitant]
  5. DICLOFENAC (DICLOFENAC) [Concomitant]
  6. PREMARIN [Concomitant]
  7. DARVOCET [Concomitant]
  8. CELEXA /00582602/ (CITALOPRAM HYDROBROMIDE) [Concomitant]
  9. NAPROXEN [Concomitant]

REACTIONS (17)
  - BONE DISORDER [None]
  - CHEST PAIN [None]
  - DYSPEPSIA [None]
  - DYSPHAGIA [None]
  - GASTRITIS [None]
  - GINGIVAL ULCERATION [None]
  - HAEMATEMESIS [None]
  - HIATUS HERNIA [None]
  - JAW DISORDER [None]
  - MALAISE [None]
  - OESOPHAGEAL ULCER [None]
  - OSTEOMYELITIS [None]
  - OSTEONECROSIS [None]
  - PAIN IN JAW [None]
  - PRIMARY SEQUESTRUM [None]
  - SYNCOPE [None]
  - TOOTH FRACTURE [None]
